FAERS Safety Report 6903140-8 (Version None)
Quarter: 2010Q3

REPORT INFORMATION
  Report Type: 
  Country: None (occurrence: None)
  Receive Date: 20100803
  Receipt Date: 20080819
  Transmission Date: 20110219
  Serious: Yes (Other)
  Sender: FDA-Public Use
  Company Number: US-PFIZER INC-2008069990

PATIENT
  Sex: Male
  Weight: 129.3 kg

DRUGS (1)
  1. LYRICA [Suspect]
     Indication: ANALGESIC THERAPY
     Dates: start: 20080101, end: 20080813

REACTIONS (4)
  - OEDEMA PERIPHERAL [None]
  - SWELLING [None]
  - SWELLING FACE [None]
  - WEIGHT INCREASED [None]
